FAERS Safety Report 7336601-0 (Version None)
Quarter: 2011Q1

REPORT INFORMATION
  Report Type: 
  Country: None (occurrence: None)
  Receive Date: 20110307
  Receipt Date: 20110222
  Transmission Date: 20110831
  Serious: Yes (Other)
  Sender: FDA-Public Use
  Company Number: CA-BAYER-201040252NA

PATIENT
  Age: 63 Year
  Sex: Male

DRUGS (10)
  1. MAGNEVIST [Suspect]
     Dosage: 19.5 ML, ONCE
     Route: 042
     Dates: start: 20060101, end: 20060101
  2. OPTIMARK [Suspect]
     Indication: NUCLEAR MAGNETIC RESONANCE IMAGING
     Dosage: 20 ML, ONCE
     Route: 042
     Dates: start: 20070101, end: 20070101
  3. SCOPOLAMINE [Concomitant]
     Dosage: 40 MG, UNK
     Dates: start: 20060101, end: 20060101
  4. SCOPOLAMINE [Concomitant]
     Dosage: 40 MG, UNK
     Dates: start: 20060101, end: 20060101
  5. MAGNEVIST [Suspect]
     Dosage: 24 ML, ONCE
     Dates: start: 20060101, end: 20060101
  6. MAGNEVIST [Suspect]
     Dosage: UNK
     Dates: start: 20040101, end: 20040101
  7. MAGNEVIST [Suspect]
     Indication: NUCLEAR MAGNETIC RESONANCE IMAGING
     Dosage: UNK
     Route: 042
     Dates: start: 20030101, end: 20030101
  8. MAGNEVIST [Suspect]
     Dosage: UNK
     Dates: start: 20060101, end: 20060101
  9. OPTIMARK [Suspect]
     Dosage: 45 ML, ONCE
     Dates: start: 20070101, end: 20070101
  10. MAGNEVIST [Suspect]
     Dosage: UNK
     Dates: start: 20050101, end: 20050101

REACTIONS (5)
  - SKIN TIGHTNESS [None]
  - NEPHROGENIC SYSTEMIC FIBROSIS [None]
  - SKIN HYPERTROPHY [None]
  - INTERMITTENT CLAUDICATION [None]
  - MUSCULOSKELETAL STIFFNESS [None]
